FAERS Safety Report 5853903-5 (Version None)
Quarter: 2008Q3

REPORT INFORMATION
  Report Type: 
  Country: None (occurrence: None)
  Receive Date: 20080822
  Receipt Date: 20080813
  Transmission Date: 20090109
  Serious: Yes (Hospitalization)
  Sender: FDA-Public Use
  Company Number: A0743125A

PATIENT
  Age: 73 Year
  Sex: Male
  Weight: 83 kg

DRUGS (6)
  1. LAPATINIB [Suspect]
     Indication: PROSTATE CANCER
     Dosage: 1250MG PER DAY
     Route: 048
  2. ASPIRIN [Concomitant]
  3. MIRAPEX [Concomitant]
  4. VITAMIN B-12 [Concomitant]
  5. MACROBID [Concomitant]
  6. IMODIUM [Concomitant]

REACTIONS (5)
  - BLADDER NECK OBSTRUCTION [None]
  - BLOOD CREATININE INCREASED [None]
  - PYELOCALIECTASIS [None]
  - RENAL FAILURE ACUTE [None]
  - URETERIC DILATATION [None]
